FAERS Safety Report 6204339-9 (Version None)
Quarter: 2009Q2

REPORT INFORMATION
  Report Type: 
  Country: None (occurrence: None)
  Receive Date: 20090527
  Receipt Date: 20081125
  Transmission Date: 20091009
  Serious: Yes (Other)
  Sender: FDA-Public Use
  Company Number: US-PFIZER INC-2008002044

PATIENT
  Age: 78 Year
  Sex: Male

DRUGS (8)
  1. CHANTIX [Suspect]
     Dosage: UNK
     Route: 048
     Dates: start: 20070401
  2. WARFARIN [Suspect]
     Indication: ATRIAL FIBRILLATION
     Dosage: 10 MG, 1X/DAY
     Dates: start: 20030101
  3. BECLOMETASONE [Concomitant]
     Dosage: UNK
  4. DIGOXIN [Concomitant]
     Dosage: UNK
  5. FRUSEMIDE [Concomitant]
     Dosage: UNK
  6. OXYBUTYNIN CHLORIDE [Concomitant]
     Dosage: UNK
  7. PHYLLOCONTIN [Concomitant]
     Dosage: UNK
  8. ALBUTEROL [Concomitant]
     Dosage: UNK

REACTIONS (7)
  - ABNORMAL DREAMS [None]
  - COAGULATION TIME PROLONGED [None]
  - CONSTIPATION [None]
  - DRUG INTERACTION [None]
  - DRY MOUTH [None]
  - DYSGEUSIA [None]
  - FLATULENCE [None]
